FAERS Safety Report 12845943 (Version 2)
Quarter: 2016Q4

REPORT INFORMATION
  Report Type: Spontaneous
  Country: JP (occurrence: JP)
  Receive Date: 20161014
  Receipt Date: 20161026
  Transmission Date: 20170207
  Serious: Yes (Other)
  Sender: FDA-Public Use
  Company Number: JP-UCBSA-2016017999

PATIENT
  Age: 78 Year
  Sex: Male

DRUGS (2)
  1. CIMZIA [Suspect]
     Active Substance: CERTOLIZUMAB PEGOL
     Indication: OFF LABEL USE
  2. CIMZIA [Suspect]
     Active Substance: CERTOLIZUMAB PEGOL
     Indication: RHEUMATOID VASCULITIS
     Dosage: 400 MG, EV 2 WEEKS(QOW) (STRENGTH: 200 MG)
     Route: 058
     Dates: start: 20160504, end: 20161001

REACTIONS (3)
  - Comminuted fracture [Unknown]
  - Skin ulcer [Recovering/Resolving]
  - Off label use [Unknown]

NARRATIVE: CASE EVENT DATE: 20160504
